FAERS Safety Report 4660897-7 (Version None)
Quarter: 2005Q2

REPORT INFORMATION
  Report Type: 
  Country: None (occurrence: None)
  Receive Date: 20050427
  Receipt Date: 20040818
  Transmission Date: 20051028
  Serious: Yes (Hospitalization)
  Sender: FDA-Public Use
  Company Number: US-JNJFOC-20040706551

PATIENT
  Age: 29 Year
  Sex: Male
  Weight: 72.5302 kg

DRUGS (2)
  1. TRAMADOL HCL [Suspect]
     Indication: WRIST FRACTURE
     Dosage: 50 MG, 2 IN 1 DAY, ORAL
     Route: 048
     Dates: start: 20040515, end: 20040603
  2. WELLBUTRIN [Suspect]
     Indication: DEPRESSION
     Dosage: 150 MG, IN 1 DAY
     Dates: start: 20040521, end: 20040603

REACTIONS (6)
  - DIZZINESS [None]
  - FEELING ABNORMAL [None]
  - FEELING JITTERY [None]
  - GRAND MAL CONVULSION [None]
  - HEADACHE [None]
  - NAUSEA [None]
